FAERS Safety Report 22291041 (Version 1)
Quarter: 2023Q2

REPORT INFORMATION
  Report Type: Spontaneous
  Country: ES (occurrence: ES)
  Receive Date: 20230506
  Receipt Date: 20230506
  Transmission Date: 20230722
  Serious: Yes (Death, Other)
  Sender: FDA-Public Use
  Company Number: ES-LEO Pharma-350798

PATIENT
  Age: 48 Year
  Sex: Female
  Weight: 71 kg

DRUGS (5)
  1. ERTAPENEM [Suspect]
     Active Substance: ERTAPENEM
     Indication: Infection
     Dosage: UNK
     Route: 065
  2. INNOHEP [Suspect]
     Active Substance: TINZAPARIN SODIUM
     Indication: Venous thrombosis
     Dosage: 12000 INTERNATIONAL UNIT, ONCE A DAY
     Route: 065
     Dates: start: 20200525, end: 20200807
  3. INNOHEP [Suspect]
     Active Substance: TINZAPARIN SODIUM
     Dosage: 12000 INTERNATIONAL UNIT, ONCE A DAY
     Route: 065
     Dates: start: 20210413
  4. INNOHEP [Suspect]
     Active Substance: TINZAPARIN SODIUM
     Dosage: 14000 INTERNATIONAL UNIT, ONCE A DAY
     Route: 065
     Dates: start: 20200807, end: 20210413
  5. INNOHEP [Suspect]
     Active Substance: TINZAPARIN SODIUM
     Dosage: 12000 INTERNATIONAL UNIT, ONCE A DAY
     Route: 065
     Dates: start: 20200525, end: 20200807

REACTIONS (6)
  - Renal failure [Fatal]
  - Lymphoedema [Recovering/Resolving]
  - Blood pressure abnormal [Unknown]
  - Infection [Unknown]
  - Myopathy [Unknown]
  - Post thrombotic syndrome [Recovering/Resolving]

NARRATIVE: CASE EVENT DATE: 20200510
